FAERS Safety Report 20975984 (Version 1)
Quarter: 2022Q2

REPORT INFORMATION
  Report Type: Spontaneous
  Country: US (occurrence: US)
  Receive Date: 20220617
  Receipt Date: 20220617
  Transmission Date: 20220721
  Serious: No
  Sender: FDA-Public Use
  Company Number: US-BRISTOL-MYERS SQUIBB COMPANY-2022-060007

PATIENT
  Age: 66 Year

DRUGS (1)
  1. REVLIMID [Suspect]
     Active Substance: LENALIDOMIDE
     Indication: Plasma cell myeloma
     Dosage: DOSE : UNAVAILABLE;     FREQ : 1 CAPSULE BY MOUTH DAILY 21 DAYS, 7 DAYS OFF
     Route: 048
     Dates: start: 20211015

REACTIONS (1)
  - White blood cell count decreased [Unknown]
